FAERS Safety Report 4844044-4 (Version None)
Quarter: 2005Q4

REPORT INFORMATION
  Report Type: 
  Country: None (occurrence: None)
  Receive Date: 20051202
  Receipt Date: 20051121
  Transmission Date: 20060501
  Serious: Yes (Hospitalization)
  Sender: FDA-Public Use
  Company Number: 2005GB02278

PATIENT
  Age: 82 Year
  Sex: Female

DRUGS (12)
  1. ANASTROZOLE [Suspect]
     Indication: BREAST CANCER
     Route: 048
  2. VALPROATE SODIUM [Suspect]
     Indication: EPILEPSY
     Dosage: 200 MG OM, 400 MG ON
     Route: 048
  3. METFORMIN [Concomitant]
     Route: 048
  4. LATANOPROST [Concomitant]
     Route: 047
  5. GTN-S [Concomitant]
     Route: 065
  6. DIGOXIN [Concomitant]
     Route: 048
  7. AZOPT [Concomitant]
     Route: 047
  8. PARACETAMOL [Concomitant]
     Indication: PAIN
     Dosage: I - II QDS
     Route: 065
  9. SALBUTAMOL [Concomitant]
     Indication: WHEEZING
     Dosage: 2 P QDA
     Route: 065
  10. FRUSEMIDE [Concomitant]
     Route: 065
  11. LANSOPRAZOLE [Concomitant]
     Route: 065
  12. QUININE SULPHATE [Concomitant]
     Route: 065

REACTIONS (1)
  - BONE MARROW FAILURE [None]
